FAERS Safety Report 9883137 (Version 3)
Quarter: 2014Q1

REPORT INFORMATION
  Report Type: Spontaneous
  Country: AT (occurrence: AT)
  Receive Date: 20140208
  Receipt Date: 20140313
  Transmission Date: 20141002
  Serious: Yes (Hospitalization, Disabling)
  Sender: FDA-Public Use
  Company Number: AT-US-EMD SERONO, INC.-7266827

PATIENT
  Age: 23 Year
  Sex: Male

DRUGS (4)
  1. REBIF [Suspect]
     Indication: MULTIPLE SCLEROSIS
     Dates: start: 200805, end: 20140128
  2. CORTISON [Suspect]
     Indication: PRODUCT USED FOR UNKNOWN INDICATION
     Route: 048
     Dates: start: 201301, end: 201301
  3. CORTISON [Suspect]
     Route: 048
     Dates: start: 201103
  4. CORTISON [Suspect]
     Route: 048
     Dates: start: 201002

REACTIONS (1)
  - Osteonecrosis [Not Recovered/Not Resolved]
